FAERS Safety Report 11993629 (Version 3)
Quarter: 2016Q1

REPORT INFORMATION
  Report Type: Spontaneous
  Country: US (occurrence: US)
  Receive Date: 20160203
  Receipt Date: 20160217
  Transmission Date: 20160526
  Serious: No
  Sender: FDA-Public Use
  Company Number: US-PFIZER INC-2016060530

PATIENT
  Age: 34 Year
  Sex: Male

DRUGS (1)
  1. SULFASALAZINE. [Suspect]
     Active Substance: SULFASALAZINE
     Indication: COLITIS ULCERATIVE
     Dosage: 500 MG, 3X/DAY
     Route: 048

REACTIONS (3)
  - Rash [Not Recovered/Not Resolved]
  - Product quality issue [Not Recovered/Not Resolved]
  - Product odour abnormal [Not Recovered/Not Resolved]
